FAERS Safety Report 7517031-5 (Version None)
Quarter: 2011Q2

REPORT INFORMATION
  Report Type: 
  Country: None (occurrence: None)
  Receive Date: 20110526
  Receipt Date: 20110526
  Transmission Date: 20111010
  Serious: No
  Sender: FDA-Public Use
  Company Number: None

PATIENT
  Age: 11 Year
  Sex: Male
  Weight: 33.5662 kg

DRUGS (1)
  1. METHYLPHENIDATE [Suspect]
     Indication: PSYCHOMOTOR HYPERACTIVITY
     Dosage: 30 PILLS PER MONTH ONCE A DAY PO
     Route: 048
     Dates: start: 20110517, end: 20110525

REACTIONS (2)
  - DRUG INEFFECTIVE [None]
  - PRODUCT SUBSTITUTION ISSUE [None]
